FAERS Safety Report 4536650-1 (Version None)
Quarter: 2004Q4

REPORT INFORMATION
  Report Type: 
  Country: None (occurrence: None)
  Receive Date: 20041220
  Receipt Date: 20041208
  Transmission Date: 20050328
  Serious: Yes (Hospitalization)
  Sender: FDA-Public Use
  Company Number: HQWYE561319NOV04

PATIENT
  Age: 77 Year
  Sex: Male
  Weight: 93.8 kg

DRUGS (11)
  1. MYLOTARG [Suspect]
     Indication: ACUTE MYELOID LEUKAEMIA
     Dosage: 19 MG, INTRAVENOUS
     Route: 042
     Dates: start: 20040519, end: 20040101
  2. ASPIRIN [Concomitant]
  3. ATENOLOL [Concomitant]
  4. GLIPIZIDE [Concomitant]
  5. LISINOPRIL [Concomitant]
  6. METFORMIN HCL [Concomitant]
  7. RANITIDINE [Concomitant]
  8. OXYCODONE (OXYCODONE) [Concomitant]
  9. TYLENOL [Concomitant]
  10. BENADRYL (DIPHENDHYDRAMINE HYDROCHLORIDE) [Concomitant]
  11. INSULIN [Concomitant]

REACTIONS (3)
  - ATRIAL FIBRILLATION [None]
  - PALPITATIONS [None]
  - THROMBOCYTOPENIA [None]
